FAERS Safety Report 4884040-4 (Version None)
Quarter: 2006Q1

REPORT INFORMATION
  Report Type: 
  Country: None (occurrence: None)
  Receive Date: 20060118
  Receipt Date: 20051007
  Transmission Date: 20060701
  Serious: Yes (Hospitalization)
  Sender: FDA-Public Use
  Company Number: US-MERCK-0510USA05715

PATIENT
  Age: 55 Year
  Sex: Male
  Weight: 123 kg

DRUGS (1)
  1. VIOXX [Suspect]
     Indication: ARTHRITIS
     Route: 048
     Dates: start: 19990929, end: 20040928

REACTIONS (3)
  - CARDIAC DISORDER [None]
  - DYSPNOEA [None]
  - THROMBOSIS [None]
